FAERS Safety Report 4746299-3 (Version None)
Quarter: 2005Q3

REPORT INFORMATION
  Report Type: 
  Country: None (occurrence: None)
  Receive Date: 20050809
  Receipt Date: 20050719
  Transmission Date: 20060218
  Serious: Yes (Other)
  Sender: FDA-Public Use
  Company Number: 2005BH000690

PATIENT
  Age: 64 Year
  Sex: Male

DRUGS (2)
  1. LACTATED RINGER'S [Suspect]
     Indication: PROSTATECTOMY
     Dosage: 500 ML; ONCE; IV
     Route: 042
     Dates: start: 20050504, end: 20050504
  2. CAPTOPRIL [Concomitant]

REACTIONS (2)
  - BLOOD PRESSURE DIASTOLIC INCREASED [None]
  - DRUG HYPERSENSITIVITY [None]
